FAERS Safety Report 7315487-4 (Version None)
Quarter: 2011Q1

REPORT INFORMATION
  Report Type: 
  Country: None (occurrence: None)
  Receive Date: 20110218
  Receipt Date: 20110218
  Transmission Date: 20110831
  Serious: Yes (Death, Hospitalization)
  Sender: FDA-Public Use
  Company Number: None

PATIENT
  Age: 91 Year
  Sex: Female
  Weight: 52.5 kg

DRUGS (12)
  1. XALATAN [Concomitant]
  2. ASA [Concomitant]
  3. FISH OIL [Concomitant]
  4. LOSARTAN POTASSIUM [Concomitant]
  5. VIT D3 [Concomitant]
  6. NORVASC [Concomitant]
  7. LASIX [Concomitant]
  8. ANTIOXIDENT [Concomitant]
  9. SIMVASTATIN [Concomitant]
  10. CALCITRIOL [Concomitant]
  11. ATENOLOL [Suspect]
     Indication: HYPERTENSION
     Dosage: 12.5MG DAILY PO CHRONIC
     Route: 048
  12. DIGOXIN [Suspect]
     Indication: HYPERTENSION
     Dosage: 0.063MG DAILY PO CHRONIC

REACTIONS (2)
  - SYNCOPE [None]
  - BRADYCARDIA [None]
